FAERS Safety Report 9838906 (Version 1)
Quarter: 2014Q1

REPORT INFORMATION
  Report Type: Spontaneous
  Country: US (occurrence: US)
  Receive Date: 20140123
  Receipt Date: 20140123
  Transmission Date: 20141002
  Serious: Yes (Hospitalization)
  Sender: FDA-Public Use
  Company Number: US-TEVA-457906USA

PATIENT
  Age: 36 Year
  Sex: Female

DRUGS (5)
  1. PROPOFOL [Suspect]
     Indication: ANAESTHESIA
     Route: 042
  2. MIDAZOLAM [Interacting]
     Indication: AGITATION
     Route: 065
  3. LIDOCAINE [Concomitant]
     Route: 042
  4. GLYCOPYRROLATE [Concomitant]
     Route: 042
  5. PHENYLEPHRINE [Concomitant]
     Indication: BLOOD PRESSURE DECREASED
     Route: 042

REACTIONS (2)
  - Dissociative amnesia [Recovering/Resolving]
  - Drug interaction [Recovering/Resolving]
